FAERS Safety Report 25390766 (Version 1)
Quarter: 2025Q2

REPORT INFORMATION
  Report Type: Spontaneous
  Country: FR (occurrence: FR)
  Receive Date: 20250603
  Receipt Date: 20250603
  Transmission Date: 20250716
  Serious: Yes (Hospitalization)
  Sender: MYLAN
  Company Number: None

PATIENT
  Age: 48 Year
  Sex: Male
  Weight: 100 kg

DRUGS (16)
  1. METFORMIN [Suspect]
     Active Substance: METFORMIN HYDROCHLORIDE
     Indication: Product used for unknown indication
  2. METFORMIN [Suspect]
     Active Substance: METFORMIN HYDROCHLORIDE
     Route: 065
  3. METFORMIN [Suspect]
     Active Substance: METFORMIN HYDROCHLORIDE
     Route: 065
  4. METFORMIN [Suspect]
     Active Substance: METFORMIN HYDROCHLORIDE
  5. RAMIPRIL [Suspect]
     Active Substance: RAMIPRIL
     Indication: Product used for unknown indication
  6. RAMIPRIL [Suspect]
     Active Substance: RAMIPRIL
     Route: 065
  7. RAMIPRIL [Suspect]
     Active Substance: RAMIPRIL
     Route: 065
  8. RAMIPRIL [Suspect]
     Active Substance: RAMIPRIL
  9. ATORVASTATIN [Suspect]
     Active Substance: ATORVASTATIN
     Indication: Product used for unknown indication
  10. ATORVASTATIN [Suspect]
     Active Substance: ATORVASTATIN
     Route: 065
  11. ATORVASTATIN [Suspect]
     Active Substance: ATORVASTATIN
     Route: 065
  12. ATORVASTATIN [Suspect]
     Active Substance: ATORVASTATIN
  13. INSULIN GLARGINE [Suspect]
     Active Substance: INSULIN GLARGINE
     Indication: Product used for unknown indication
  14. INSULIN GLARGINE [Suspect]
     Active Substance: INSULIN GLARGINE
     Route: 065
  15. INSULIN GLARGINE [Suspect]
     Active Substance: INSULIN GLARGINE
     Route: 065
  16. INSULIN GLARGINE [Suspect]
     Active Substance: INSULIN GLARGINE

REACTIONS (2)
  - Poisoning deliberate [Recovered/Resolved]
  - Hypoglycaemic coma [Recovered/Resolved]

NARRATIVE: CASE EVENT DATE: 20250509
